FAERS Safety Report 16361671 (Version 5)
Quarter: 2019Q3

REPORT INFORMATION
  Report Type: Report from Study
  Country: US (occurrence: US)
  Receive Date: 20190528
  Receipt Date: 20190806
  Transmission Date: 20191004
  Serious: Yes (Hospitalization, Other)
  Sender: FDA-Public Use
  Company Number: US-ASPEN-GLO2019US005021

PATIENT
  Age: 12 Year
  Sex: Male
  Weight: 77.06 kg

DRUGS (28)
  1. RUXOLITINIB [Suspect]
     Active Substance: RUXOLITINIB
     Dosage: 95 MG, BID
     Route: 048
     Dates: start: 20190110, end: 20190123
  2. CYTARABINE. [Suspect]
     Active Substance: CYTARABINE
     Indication: ACUTE LYMPHOCYTIC LEUKAEMIA
     Dosage: 1.38 ML, QD
     Route: 058
     Dates: start: 20181022, end: 20181026
  3. MERCAPTOPURINE. [Suspect]
     Active Substance: MERCAPTOPURINE
     Dosage: 50 MG, QD
     Route: 048
     Dates: start: 20190128, end: 20190129
  4. ROCEPHIN [Suspect]
     Active Substance: CEFTRIAXONE SODIUM
     Indication: PRODUCT USED FOR UNKNOWN INDICATION
     Dosage: UNK
     Route: 065
     Dates: start: 20190423, end: 20190425
  5. METHOTREXATE. [Suspect]
     Active Substance: METHOTREXATE
     Dosage: 15 MG, 1 DOSAGE TOTAL
     Route: 037
     Dates: start: 20190419, end: 20190419
  6. TIOGUANINE [Suspect]
     Active Substance: THIOGUANINE ANHYDROUS
     Dosage: 120 MG, QD
     Route: 048
     Dates: start: 20190427, end: 20190502
  7. MERCAPTOPURINE. [Suspect]
     Active Substance: MERCAPTOPURINE
     Indication: ACUTE LYMPHOCYTIC LEUKAEMIA
     Dosage: 100 MG, MONDAY TO THURSDAY. 125 MG FRIDAY TO SUNDAY FOR TWO WEEKS
     Route: 048
     Dates: start: 20181015, end: 20181028
  8. CYCLOPHOSPHAMIDE. [Suspect]
     Active Substance: CYCLOPHOSPHAMIDE
     Indication: ACUTE LYMPHOCYTIC LEUKAEMIA
     Dosage: 1840 MG, 1 DOSAGE TOTAL
     Route: 042
     Dates: start: 20181015, end: 20181015
  9. METHOTREXATE. [Suspect]
     Active Substance: METHOTREXATE
     Dosage: 15 MG, QD
     Route: 037
     Dates: start: 20190429, end: 20190429
  10. METHOTREXATE. [Suspect]
     Active Substance: METHOTREXATE
  11. RUXOLITINIB [Suspect]
     Active Substance: RUXOLITINIB
     Indication: ACUTE LYMPHOCYTIC LEUKAEMIA
     Dosage: 90 MG, BID
     Route: 048
     Dates: start: 20181015, end: 20181028
  12. ROXICODONE [Suspect]
     Active Substance: OXYCODONE HYDROCHLORIDE
     Indication: PRODUCT USED FOR UNKNOWN INDICATION
     Dosage: UNK
     Route: 065
     Dates: start: 20180808
  13. METHOTREXATE. [Suspect]
     Active Substance: METHOTREXATE
     Dosage: 8600 MG, 1 DOSAGE TOTAL
     Route: 042
     Dates: start: 20190128, end: 20190128
  14. RUXOLITINIB [Suspect]
     Active Substance: RUXOLITINIB
     Dosage: 100 MG, BID
     Route: 048
     Dates: start: 20190419, end: 20190426
  15. RUXOLITINIB [Suspect]
     Active Substance: RUXOLITINIB
     Dosage: 100 MG BID
     Route: 048
     Dates: start: 20190427, end: 20190502
  16. BACTRIM [Suspect]
     Active Substance: SULFAMETHOXAZOLE\TRIMETHOPRIM
     Indication: PRODUCT USED FOR UNKNOWN INDICATION
     Dosage: UNK
     Route: 065
     Dates: start: 20180810
  17. CYTARABINE. [Suspect]
     Active Substance: CYTARABINE
     Dosage: 156 MG, QD
     Route: 058
     Dates: start: 20190419, end: 20190422
  18. LEUCOVORIN. [Suspect]
     Active Substance: LEUCOVORIN
     Dosage: 28.6 MG, BID
     Route: 042
     Dates: start: 20190120
  19. TIOGUANINE [Suspect]
     Active Substance: THIOGUANINE ANHYDROUS
     Indication: ACUTE LYMPHOCYTIC LEUKAEMIA
     Dosage: 120 MG, QD
     Route: 048
     Dates: start: 20190419, end: 20190426
  20. CYTARABINE. [Suspect]
     Active Substance: CYTARABINE
     Dosage: 156 MG, QD
     Route: 058
     Dates: start: 20190426, end: 20190502
  21. CYCLOPHOSPHAMIDE. [Suspect]
     Active Substance: CYCLOPHOSPHAMIDE
     Dosage: 2080 MG, 1 DOSAGE TOTAL
     Route: 042
     Dates: start: 20190419, end: 20190419
  22. ZOFRAN [Concomitant]
     Active Substance: ONDANSETRON HYDROCHLORIDE
     Indication: PRODUCT USED FOR UNKNOWN INDICATION
     Dosage: UNK
     Route: 065
     Dates: start: 20180809
  23. NEURONTIN [Concomitant]
     Active Substance: GABAPENTIN
     Indication: PRODUCT USED FOR UNKNOWN INDICATION
     Dosage: UNK
     Route: 065
     Dates: start: 20181001
  24. VINCRISTINE [Suspect]
     Active Substance: VINCRISTINE
     Indication: ACUTE LYMPHOCYTIC LEUKAEMIA
     Dosage: 2 MG, 1 DOSAGE TOTAL
     Route: 042
     Dates: start: 20181029, end: 20181029
  25. PEGASPARGASE [Suspect]
     Active Substance: PEGASPARGASE
     Indication: ACUTE LYMPHOCYTIC LEUKAEMIA
     Dosage: UNK IU/M2
     Route: 042
     Dates: end: 20190225
  26. VINCRISTINE [Suspect]
     Active Substance: VINCRISTINE
     Dosage: 2 MG, 1 DOSAGE TOTAL
     Route: 042
     Dates: start: 20190128, end: 20190128
  27. METHOTREXATE. [Suspect]
     Active Substance: METHOTREXATE
     Indication: ACUTE LYMPHOCYTIC LEUKAEMIA
     Dosage: 8600 MG, 1 DOSAGE TOTAL
     Route: 042
     Dates: start: 20181123, end: 20181123
  28. LEUCOVORIN. [Suspect]
     Active Substance: LEUCOVORIN
     Indication: ACUTE LYMPHOCYTIC LEUKAEMIA
     Dosage: 28.6 MG, BID
     Route: 042
     Dates: start: 20190130, end: 20190131

REACTIONS (5)
  - Febrile neutropenia [Recovered/Resolved]
  - Febrile neutropenia [Recovered/Resolved]
  - Thrombocytopenia [Recovered/Resolved]
  - Parainfluenzae virus infection [Recovered/Resolved]
  - Venoocclusive liver disease [Recovered/Resolved]

NARRATIVE: CASE EVENT DATE: 20181101
